FAERS Safety Report 15854922 (Version 1)
Quarter: 2019Q1

REPORT INFORMATION
  Report Type: Spontaneous
  Country: US (occurrence: US)
  Receive Date: 20190122
  Receipt Date: 20190122
  Transmission Date: 20190417
  Serious: No
  Sender: FDA-Public Use
  Company Number: US-SUNOVION-2019SUN000127

PATIENT

DRUGS (1)
  1. LATUDA [Suspect]
     Active Substance: LURASIDONE HYDROCHLORIDE
     Dosage: UNKNOWN
     Route: 048

REACTIONS (5)
  - Temperature regulation disorder [Unknown]
  - Anxiety [Unknown]
  - Binge eating [Unknown]
  - Drug effect incomplete [Unknown]
  - Obsessive thoughts [Unknown]
